FAERS Safety Report 17130720 (Version 1)
Quarter: 2019Q4

REPORT INFORMATION
  Report Type: Spontaneous
  Country: BO (occurrence: BO)
  Receive Date: 20191209
  Receipt Date: 20191209
  Transmission Date: 20200122
  Serious: Yes (Hospitalization)
  Sender: FDA-Public Use
  Company Number: NVSC2019BO061959

PATIENT
  Sex: Female

DRUGS (1)
  1. GLIVEC [Suspect]
     Active Substance: IMATINIB MESYLATE
     Indication: CHRONIC MYELOID LEUKAEMIA
     Dosage: 3 OF 100 MG
     Route: 065

REACTIONS (4)
  - Gastrooesophageal reflux disease [Unknown]
  - Haemoglobin decreased [Unknown]
  - Oesophageal injury [Unknown]
  - Hypersensitivity [Unknown]
